FAERS Safety Report 4795491-0 (Version None)
Quarter: 2005Q4

REPORT INFORMATION
  Report Type: 
  Country: None (occurrence: None)
  Receive Date: 20051012
  Receipt Date: 20050908
  Transmission Date: 20060501
  Serious: Yes (Hospitalization)
  Sender: FDA-Public Use
  Company Number: JP-ROCHE-416955

PATIENT
  Age: 72 Year
  Sex: Male

DRUGS (5)
  1. PANALDINE [Suspect]
     Indication: THROMBOSIS PROPHYLAXIS
     Dosage: SECONDARY INDICATIONS OF STENT PLACEMENT AND ACUTE MYOCARDIAL INFARCTION
     Route: 048
     Dates: start: 20050727, end: 20050824
  2. ASPIRIN [Concomitant]
     Route: 048
     Dates: start: 20050727, end: 20050921
  3. FAMOTIDINE [Concomitant]
  4. PLETAL [Concomitant]
     Route: 048
     Dates: start: 20050727, end: 20050921
  5. RENIVACE [Concomitant]
     Dates: start: 20050727, end: 20050921

REACTIONS (6)
  - ALANINE AMINOTRANSFERASE INCREASED [None]
  - ANOREXIA [None]
  - BLOOD ALKALINE PHOSPHATASE INCREASED [None]
  - HEPATIC FUNCTION ABNORMAL [None]
  - JAUNDICE [None]
  - MALAISE [None]
